FAERS Safety Report 9568788 (Version 2)
Quarter: 2013Q4

REPORT INFORMATION
  Report Type: Spontaneous
  Country: US (occurrence: US)
  Receive Date: 20130930
  Receipt Date: 20131025
  Transmission Date: 20140711
  Serious: Yes (Other)
  Sender: FDA-Public Use
  Company Number: US-AMGEN-USASP2013063113

PATIENT
  Age: 59 Year
  Sex: Female
  Weight: 113.83 kg

DRUGS (24)
  1. ENBREL [Suspect]
     Indication: RHEUMATOID ARTHRITIS
     Dosage: 50 MG, QWK
     Route: 058
     Dates: start: 201110
  2. LIPITOR [Concomitant]
     Dosage: 40 MG, QD (1/2 TAB. DAILY)
  3. OS-CAL 500 + D [Concomitant]
     Dosage: 500 MG, BID (1 TAB TWO TIMES DAILY )
     Route: 048
  4. COREG [Concomitant]
     Dosage: 6.25 MG, BID (1 TAB TWO TIMES DAILY)
     Route: 048
  5. ZYRTEC [Concomitant]
     Dosage: 10 MG, QD
     Route: 048
  6. KLONOPIN [Concomitant]
     Dosage: 1 MG, UNK (1 TAB EVERY EVENING)
     Route: 048
  7. CATAPRES                           /00171101/ [Concomitant]
     Dosage: 0.1 MG, BID (1 TAB TWO TIMES DAILY)
     Route: 048
  8. VOLTAREN                           /00372301/ [Concomitant]
     Dosage: 1 %, BID (APPLY 2 G TWO TIMES DAILY)
     Route: 061
  9. HEMORRHOIDAL HC                    /00028604/ [Concomitant]
     Indication: HAEMORRHOIDS
     Dosage: 25 MG, AS NECESSARY
     Route: 054
  10. ZESTRIL [Concomitant]
     Dosage: 20 MG, QD (1 TAB TWO TIMES)
     Route: 048
  11. GLUCOPHAGE [Concomitant]
     Dosage: 500 MG, BID (1 TAB TWO TIMES DAILY)
  12. PROTONIX [Concomitant]
     Dosage: 40 MG, BID (1 TAB TWO TIMES DAILY)
     Route: 048
  13. KLOR CON [Concomitant]
     Dosage: 20 MEQ, BID (1 TAB TWO TIMES DAILY)
     Route: 048
  14. PRED FORTE [Concomitant]
     Dosage: 1 %, Q2H (1 DROP EVERY TWO HRS)
     Route: 047
  15. ZOLOFT [Concomitant]
     Dosage: 100 MG, QD
     Route: 048
  16. VESICARE [Concomitant]
     Dosage: 5 MG, QD
     Route: 048
  17. DESYREL [Concomitant]
     Dosage: 100 MG, UNK (TAKE TWO TAB)
     Route: 048
  18. NIZORAL [Concomitant]
     Dosage: 2 %, QD
     Route: 061
  19. DELTASONE                          /00044701/ [Concomitant]
     Dosage: 10 MG, QD
     Route: 048
  20. METHOTREXATE [Concomitant]
     Dosage: UNK
     Dates: end: 201212
  21. INFLUENZA [Concomitant]
     Dosage: UNK
     Dates: start: 201309, end: 201309
  22. PERCOCET                           /00867901/ [Concomitant]
     Indication: PAIN
     Dosage: 5-325 MG (EVERY EIGHT HOURS)
     Route: 048
  23. PNEUMOVAX [Concomitant]
     Dosage: UNK
     Dates: start: 2011
  24. HYDROXYCHLOROQUINE [Concomitant]
     Dosage: UNK

REACTIONS (28)
  - Renal cyst [Not Recovered/Not Resolved]
  - Type 2 diabetes mellitus [Not Recovered/Not Resolved]
  - Depression [Not Recovered/Not Resolved]
  - Post-traumatic stress disorder [Not Recovered/Not Resolved]
  - Uveitis [Unknown]
  - Swelling [Not Recovered/Not Resolved]
  - Joint swelling [Not Recovered/Not Resolved]
  - Arthralgia [Not Recovered/Not Resolved]
  - Abdominal pain upper [Not Recovered/Not Resolved]
  - Urinary incontinence [Not Recovered/Not Resolved]
  - Dermatitis [Not Recovered/Not Resolved]
  - Headache [Not Recovered/Not Resolved]
  - Bursitis [Not Recovered/Not Resolved]
  - Cervical radiculopathy [Not Recovered/Not Resolved]
  - Pain [Not Recovered/Not Resolved]
  - Obesity [Not Recovered/Not Resolved]
  - Hypertension [Not Recovered/Not Resolved]
  - Irritable bowel syndrome [Not Recovered/Not Resolved]
  - Gastrooesophageal reflux disease [Not Recovered/Not Resolved]
  - Hyperlipidaemia [Not Recovered/Not Resolved]
  - Seasonal allergy [Not Recovered/Not Resolved]
  - Back pain [Not Recovered/Not Resolved]
  - Iritis [Not Recovered/Not Resolved]
  - Injection site pruritus [Recovered/Resolved]
  - Injection site erythema [Recovered/Resolved]
  - Injection site induration [Recovered/Resolved]
  - Injection site bruising [Recovered/Resolved]
  - Chest pain [Recovered/Resolved]
